FAERS Safety Report 6447940-X (Version None)
Quarter: 2009Q4

REPORT INFORMATION
  Report Type: 
  Country: None (occurrence: None)
  Receive Date: 20091120
  Receipt Date: 20091117
  Transmission Date: 20100525
  Serious: Yes (Death, Hospitalization, Other)
  Sender: FDA-Public Use
  Company Number: FR-JNJFOC-20091104768

PATIENT
  Sex: Female

DRUGS (7)
  1. IMODIUM [Suspect]
     Indication: DIARRHOEA
     Route: 048
     Dates: start: 20090720, end: 20090727
  2. FUROSEMIDE [Concomitant]
     Route: 065
  3. ARIXTRA [Concomitant]
     Route: 058
  4. POTASSIUM GLUCONATE TAB [Concomitant]
     Route: 048
  5. RISPERDAL [Concomitant]
  6. COVERSYL [Concomitant]
     Route: 048
  7. SERESTA [Concomitant]
     Route: 048

REACTIONS (12)
  - ACUTE ABDOMEN [None]
  - ASCITES [None]
  - BRAIN NATRIURETIC PEPTIDE INCREASED [None]
  - BRONCHIAL OBSTRUCTION [None]
  - CARDIAC FAILURE [None]
  - CARDIOGENIC SHOCK [None]
  - OEDEMA PERIPHERAL [None]
  - PLEURAL EFFUSION [None]
  - PNEUMONIA ASPIRATION [None]
  - RALES [None]
  - SMALL INTESTINAL OBSTRUCTION [None]
  - VOMITING [None]
